FAERS Safety Report 20316002 (Version 1)
Quarter: 2022Q1

REPORT INFORMATION
  Report Type: Spontaneous
  Country: EG (occurrence: EG)
  Receive Date: 20220110
  Receipt Date: 20220110
  Transmission Date: 20220423
  Serious: Yes (Hospitalization, Other)
  Sender: FDA-Public Use
  Company Number: EG-NOVOPROD-880253

PATIENT
  Age: 53 Year
  Sex: Female
  Weight: 100 kg

DRUGS (9)
  1. INSULIN HUMAN [Suspect]
     Active Substance: INSULIN HUMAN
     Indication: Type 1 diabetes mellitus
     Dosage: 70 IU, QD ( 40 IU IN MORNING AND 30 IU IN NIGHT )
     Route: 058
  2. AMLODIPINE BESYLATE [Concomitant]
     Active Substance: AMLODIPINE BESYLATE
     Indication: Hypertension
     Dosage: 1TAB ORAL
     Route: 048
  3. ACTI COLLA C [Concomitant]
     Indication: Osteoporosis
     Dosage: ONCE DAILY  1 MONTH AGO
     Route: 065
  4. NEUROTONE [Concomitant]
     Indication: Neuropathy peripheral
     Dosage: 1 TAB./DAY  STARTED MORE THAN 1 YEAR AGO
  5. DIMRA [Concomitant]
     Indication: Bone disorder
     Dosage: 1 TAB./DAY
     Route: 048
  6. FOSAMAX PLUS D [Concomitant]
     Active Substance: ALENDRONATE SODIUM\CHOLECALCIFEROL
     Indication: Hysterectomy
     Dosage: 1 TAB./WEEK   1 MONTH AGO
     Route: 048
  7. RECOXIBRIGHT [Concomitant]
     Indication: Hysterectomy
     Dosage: 120 MG, QD
     Route: 048
  8. CIPROFAR [Concomitant]
     Indication: Bone disorder
     Dosage: 750 MG, QD
     Route: 065
  9. LEVOTHYROXINE [Concomitant]
     Active Substance: LEVOTHYROXINE
     Indication: Hypothyroidism
     Dosage: 50 MG, QD
     Route: 048

REACTIONS (5)
  - Renal stone removal [Not Recovered/Not Resolved]
  - Pyrexia [Not Recovered/Not Resolved]
  - Urinary retention [Not Recovered/Not Resolved]
  - White blood cells urine positive [Not Recovered/Not Resolved]
  - Diabetes mellitus inadequate control [Not Recovered/Not Resolved]
